FAERS Safety Report 20721233 (Version 1)
Quarter: 2022Q2

REPORT INFORMATION
  Report Type: Report from Study
  Country: GB (occurrence: GB)
  Receive Date: 20220418
  Receipt Date: 20220418
  Transmission Date: 20220721
  Serious: Yes (Hospitalization, Other)
  Sender: FDA-Public Use
  Company Number: GB-SAMSUNG BIOEPIS-SB-2022-08477

PATIENT
  Age: 32 Year
  Sex: Male

DRUGS (1)
  1. IMRALDI [Suspect]
     Active Substance: ADALIMUMAB
     Indication: Psoriasis
     Route: 058
     Dates: start: 20220320

REACTIONS (6)
  - Bursitis infective [Recovering/Resolving]
  - Arthritis bacterial [Recovering/Resolving]
  - Arthralgia [Recovering/Resolving]
  - COVID-19 [Unknown]
  - Peripheral swelling [Unknown]
  - Erythema [Unknown]
